FAERS Safety Report 9307691 (Version 1)
Quarter: 2013Q2

REPORT INFORMATION
  Report Type: Spontaneous
  Country: FR (occurrence: FR)
  Receive Date: 20130524
  Receipt Date: 20130524
  Transmission Date: 20140414
  Serious: Yes (Other)
  Sender: FDA-Public Use
  Company Number: FR-ELI_LILLY_AND_COMPANY-FR201305005361

PATIENT
  Sex: Female

DRUGS (4)
  1. GEMZAR [Suspect]
     Indication: LUNG ADENOCARCINOMA
  2. ALIMTA [Suspect]
     Indication: LUNG ADENOCARCINOMA
     Dosage: UNK
     Dates: start: 20111213
  3. CISPLATIN [Concomitant]
  4. TARCEVA [Concomitant]

REACTIONS (3)
  - Vascular compression [Unknown]
  - Mitral valve disease [Recovered/Resolved]
  - Liver disorder [Unknown]
